FAERS Safety Report 18963968 (Version 1)
Quarter: 2021Q1

REPORT INFORMATION
  Report Type: Spontaneous
  Country: US (occurrence: US)
  Receive Date: 20210303
  Receipt Date: 20210303
  Transmission Date: 20210420
  Serious: No
  Sender: FDA-Public Use
  Company Number: US-AMNEAL PHARMACEUTICALS-2020-AMRX-00379

PATIENT
  Sex: Male
  Weight: 75 kg

DRUGS (2)
  1. CARBIDOPA?LEVODOPA ER [Suspect]
     Active Substance: CARBIDOPA\LEVODOPA
     Indication: PARKINSON^S DISEASE
     Dosage: 5 TABLETS, DAILY (2 TABLETS IN THE MORNING, 2 TABLETS AT NOON AND 1TABLET AT NIGHT)
     Route: 065
  2. RYTARY [Suspect]
     Active Substance: CARBIDOPA\LEVODOPA
     Indication: PARKINSON^S DISEASE
     Dosage: 2 CAPSULES, 3X/DAY,
     Route: 048
     Dates: start: 202001

REACTIONS (2)
  - Tremor [Not Recovered/Not Resolved]
  - Therapeutic product effect incomplete [Unknown]

NARRATIVE: CASE EVENT DATE: 2020
